FAERS Safety Report 22358426 (Version 3)
Quarter: 2024Q3

REPORT INFORMATION
  Report Type: Report from Study
  Country: IN (occurrence: IN)
  Receive Date: 20230524
  Receipt Date: 20240716
  Transmission Date: 20241017
  Serious: Yes (Other)
  Sender: ROCHE
  Company Number: IN-ROCHE-3277821

PATIENT
  Age: 45 Year
  Sex: Female

DRUGS (1)
  1. PHESGO [Suspect]
     Active Substance: HYALURONIDASE-ZZXF\PERTUZUMAB\TRASTUZUMAB
     Indication: Breast cancer
     Dosage: PATIENT^S 15TH CYCLE OF PHESGO WAS SCHEDULED BY THE PHYSICIAN FOR THE 22ND DAY INSTEAD OF THE 21-DAY
     Route: 058
     Dates: start: 20220607

REACTIONS (5)
  - Off label use [Unknown]
  - Syncope [Unknown]
  - Cough [Unknown]
  - Nasopharyngitis [Unknown]
  - Headache [Unknown]
